FAERS Safety Report 6771552-1 (Version None)
Quarter: 2010Q2

REPORT INFORMATION
  Report Type: 
  Country: None (occurrence: None)
  Receive Date: 20100611
  Receipt Date: 20100527
  Transmission Date: 20101027
  Serious: Yes (Other)
  Sender: FDA-Public Use
  Company Number: 2010002135

PATIENT
  Age: 73 Year
  Sex: Female

DRUGS (6)
  1. TARCEVA [Suspect]
     Indication: DRUG USE FOR UNKNOWN INDICATION
     Dosage: ORAL
     Route: 048
     Dates: start: 20090923
  2. METOCLOPRAMIDE [Suspect]
     Indication: ANTIEMETIC SUPPORTIVE CARE
  3. BENDROFLUAZIDE (BENDROFLUAZIDE) [Concomitant]
  4. RAMIPRIL [Concomitant]
  5. ADCAL (CARBAZOCHROME) [Concomitant]
  6. ALENDRONIC ACID (ALENDRONIC ACID) [Concomitant]

REACTIONS (5)
  - DISEASE PROGRESSION [None]
  - MOUTH ULCERATION [None]
  - PARKINSONISM [None]
  - PLEURAL EFFUSION [None]
  - SKIN TOXICITY [None]
